FAERS Safety Report 22150674 (Version 1)
Quarter: 2023Q1

REPORT INFORMATION
  Report Type: Report from Study
  Country: CA (occurrence: CA)
  Receive Date: 20230329
  Receipt Date: 20230329
  Transmission Date: 20230417
  Serious: Yes (Other)
  Sender: FDA-Public Use
  Company Number: CA-SAMSUNG BIOEPIS-SB-2023-08184

PATIENT
  Age: 47 Year
  Sex: Female

DRUGS (1)
  1. RENFLEXIS [Suspect]
     Active Substance: INFLIXIMAB-ABDA
     Indication: Takayasu^s arteritis
     Route: 065

REACTIONS (5)
  - Haematochezia [Unknown]
  - Cough [Unknown]
  - Malaise [Unknown]
  - C-reactive protein increased [Unknown]
  - Product use in unapproved indication [Unknown]
